FAERS Safety Report 17441122 (Version 2)
Quarter: 2020Q4

REPORT INFORMATION
  Report Type: Report from Study
  Country: IT (occurrence: IT)
  Receive Date: 20200220
  Receipt Date: 20201020
  Transmission Date: 20210113
  Serious: Yes (Hospitalization)
  Sender: FDA-Public Use
  Company Number: IT-JNJFOC-20191221305

PATIENT
  Age: 63 Year
  Sex: Female

DRUGS (4)
  1. RIVAROXABAN [Suspect]
     Active Substance: RIVAROXABAN
     Indication: ATRIAL FIBRILLATION
     Dosage: 1 DF, QD
     Route: 048
     Dates: start: 20170823, end: 20191025
  2. LIBRADIN [Concomitant]
     Active Substance: BARNIDIPINE HYDROCHLORIDE
     Dosage: 20 MG
     Route: 048
  3. ENALAPRIL [Concomitant]
     Active Substance: ENALAPRIL
     Dosage: 20 MG
     Route: 048
     Dates: end: 20191025
  4. RYTMONORM [Concomitant]
     Active Substance: PROPAFENONE
     Dosage: 150 MG
     Route: 048

REACTIONS (5)
  - Haematuria [Recovering/Resolving]
  - Haemorrhoids [Recovering/Resolving]
  - Bloody discharge [Recovering/Resolving]
  - Anaemia [Recovering/Resolving]
  - Rectal haemorrhage [Recovering/Resolving]

NARRATIVE: CASE EVENT DATE: 20191024
